FAERS Safety Report 6080006-X (Version None)
Quarter: 2009Q1

REPORT INFORMATION
  Report Type: 
  Country: None (occurrence: None)
  Receive Date: 20090217
  Receipt Date: 20090202
  Transmission Date: 20090719
  Serious: No
  Sender: FDA-Public Use
  Company Number: A0764205A

PATIENT
  Age: 61 Year
  Sex: Male

DRUGS (3)
  1. COREG CR [Suspect]
     Indication: DRUG USE FOR UNKNOWN INDICATION
     Dosage: 20MG PER DAY
     Route: 048
     Dates: start: 20081101, end: 20081105
  2. ALLOPURINOL [Concomitant]
  3. PROBENECID [Concomitant]

REACTIONS (1)
  - DERMATITIS ALLERGIC [None]
